FAERS Safety Report 17834690 (Version 1)
Quarter: 2020Q2

REPORT INFORMATION
  Report Type: Spontaneous
  Country: US (occurrence: US)
  Receive Date: 20200528
  Receipt Date: 20200528
  Transmission Date: 20200714
  Serious: Yes (Other)
  Sender: FDA-Public Use
  Company Number: US-DRREDDYS-USA/USA/20/0123180

PATIENT
  Age: 50 Year
  Sex: Male
  Weight: 114.75 kg

DRUGS (1)
  1. NITROGLYCERIN. [Suspect]
     Active Substance: NITROGLYCERIN
     Indication: CHEST PAIN
     Dosage: TWO MONTHS AGO
     Route: 060

REACTIONS (4)
  - Visual impairment [Unknown]
  - Headache [Unknown]
  - Drug ineffective [Unknown]
  - Product quality issue [Unknown]
